FAERS Safety Report 24443899 (Version 2)
Quarter: 2024Q4

REPORT INFORMATION
  Report Type: Report from Study
  Country: US (occurrence: US)
  Receive Date: 20241016
  Receipt Date: 20241017
  Transmission Date: 20250114
  Serious: No
  Sender: ROCHE
  Company Number: US-ROCHE-2381579

PATIENT
  Age: 65 Year
  Sex: Female

DRUGS (16)
  1. RITUXAN [Suspect]
     Active Substance: RITUXIMAB
     Indication: Orthostatic hypotension
     Dosage: 1 X DOSE?1G/KG/DAY OVER 1 DAY EVERY 4 WEEKS
     Route: 042
  2. RITUXAN [Suspect]
     Active Substance: RITUXIMAB
     Indication: Toxic neuropathy
  3. RITUXAN [Suspect]
     Active Substance: RITUXIMAB
     Indication: Connective tissue disorder
  4. RITUXAN [Suspect]
     Active Substance: RITUXIMAB
     Indication: Autonomic neuropathy
  5. RITUXAN [Suspect]
     Active Substance: RITUXIMAB
     Indication: Polyneuropathy
  6. RANITIDINE HYDROCHLORIDE [Concomitant]
     Active Substance: RANITIDINE HYDROCHLORIDE
     Route: 048
  7. FLORINEF ACETATE [Concomitant]
     Active Substance: FLUDROCORTISONE ACETATE
     Route: 048
  8. NORTHERA [Concomitant]
     Active Substance: DROXIDOPA
     Dosage: TAKE 2 CAPS BY MOUTH AT 7 AM, THEN 1 CAP AT 10 AM, 2 PM AND 4.30 PM (TOTAL OF 5 CAPSULES PER DAY)
     Route: 048
  9. NEURONTIN [Concomitant]
     Active Substance: GABAPENTIN
     Route: 048
  10. SYNTHROID [Concomitant]
     Active Substance: LEVOTHYROXINE SODIUM
     Route: 048
  11. CHOLECALCIFEROL [Concomitant]
     Active Substance: CHOLECALCIFEROL
     Route: 048
  12. CALCIUM CARBIMIDE [Concomitant]
     Active Substance: CALCIUM CARBIMIDE
     Route: 048
  13. CYMBALTA [Concomitant]
     Active Substance: DULOXETINE HYDROCHLORIDE
     Route: 048
  14. CAPOTEN [Concomitant]
     Active Substance: CAPTOPRIL
     Route: 048
  15. CREON [Concomitant]
     Active Substance: PANCRELIPASE AMYLASE\PANCRELIPASE LIPASE\PANCRELIPASE PROTEASE
     Dosage: 1-2 CAPSULES 30 MIN BEFORE MEAL
     Route: 048
  16. IVIGLOB EX [Concomitant]
     Active Substance: HUMAN IMMUNOGLOBULIN G

REACTIONS (9)
  - Off label use [Unknown]
  - Nausea [Unknown]
  - Vomiting [Unknown]
  - Abdominal pain upper [Unknown]
  - Cough [Unknown]
  - Headache [Unknown]
  - Blood pressure increased [Unknown]
  - Anxiety [Unknown]
  - Restlessness [Unknown]
